FAERS Safety Report 14124093 (Version 2)
Quarter: 2017Q4

REPORT INFORMATION
  Report Type: Spontaneous
  Country: BR (occurrence: BR)
  Receive Date: 20171025
  Receipt Date: 20171102
  Transmission Date: 20180321
  Serious: Yes (Other)
  Sender: FDA-Public Use
  Company Number: BR-JNJFOC-20171017402

PATIENT
  Sex: Female

DRUGS (1)
  1. HALDOL DECANOATO [Suspect]
     Active Substance: HALOPERIDOL DECANOATE
     Indication: SCHIZOPHRENIA
     Route: 065

REACTIONS (5)
  - Aggression [Not Recovered/Not Resolved]
  - Product availability issue [Unknown]
  - Suicide attempt [Unknown]
  - Drug dose omission [Unknown]
  - Decreased appetite [Not Recovered/Not Resolved]
